FAERS Safety Report 12581038 (Version 1)
Quarter: 2016Q3

REPORT INFORMATION
  Report Type: Spontaneous
  Country: DE (occurrence: DE)
  Receive Date: 20160721
  Receipt Date: 20160721
  Transmission Date: 20161109
  Serious: Yes (Other)
  Sender: FDA-Public Use
  Company Number: PHHY2016DE090166

PATIENT
  Sex: Male

DRUGS (2)
  1. RITALIN LA [Suspect]
     Active Substance: METHYLPHENIDATE HYDROCHLORIDE
     Dosage: 60 MG, QD (3DF)
     Route: 065
  2. RITALIN LA [Suspect]
     Active Substance: METHYLPHENIDATE HYDROCHLORIDE
     Indication: ALCOHOL WITHDRAWAL SYNDROME
     Dosage: 80 MG, QD (4DF)
     Route: 065

REACTIONS (2)
  - Product use issue [Unknown]
  - Unresponsive to stimuli [Unknown]
